FAERS Safety Report 8090884-0 (Version None)
Quarter: 2012Q1

REPORT INFORMATION
  Report Type: 
  Country: None (occurrence: None)
  Receive Date: 20120131
  Receipt Date: 20120130
  Transmission Date: 20120608
  Serious: Yes (Life-Threatening, Hospitalization, Other)
  Sender: FDA-Public Use
  Company Number: JP-JNJFOC-20110702262

PATIENT
  Age: 76 Year
  Sex: Male

DRUGS (2)
  1. CONIEL [Concomitant]
     Indication: HYPERTENSION
     Route: 048
     Dates: start: 20090117
  2. GALANTAMINE HYDROBROMIDE [Suspect]
     Indication: DEMENTIA ALZHEIMER'S TYPE
     Route: 048
     Dates: start: 20110623, end: 20110624

REACTIONS (4)
  - SUICIDE ATTEMPT [None]
  - DEPRESSION [None]
  - DECREASED APPETITE [None]
  - AMIMIA [None]
